FAERS Safety Report 23719254 (Version 1)
Quarter: 2024Q2

REPORT INFORMATION
  Report Type: Spontaneous
  Country: US (occurrence: None)
  Receive Date: 20240408
  Receipt Date: 20240408
  Transmission Date: 20240716
  Serious: No
  Sender: FDA-Public Use
  Company Number: None

PATIENT
  Sex: Female

DRUGS (1)
  1. MYCOPHENOLIC ACID [Suspect]
     Active Substance: MYCOPHENOLIC ACID
     Indication: Interstitial lung disease
     Dosage: : TAKE 2 TABLETS (1,000 MG TOTAL) BY MOUTH 2 (TWO) TIMES A DAY?
     Route: 048
     Dates: start: 20240214

REACTIONS (1)
  - Therapy interrupted [None]
